FAERS Safety Report 5203728-9 (Version None)
Quarter: 2007Q1

REPORT INFORMATION
  Report Type: 
  Country: None (occurrence: None)
  Receive Date: 20070108
  Receipt Date: 20070108
  Transmission Date: 20070707
  Serious: Yes (Hospitalization)
  Sender: FDA-Public Use
  Company Number: None

PATIENT
  Age: 41 Year
  Sex: Female
  Weight: 53.0709 kg

DRUGS (1)
  1. BONIVA [Suspect]
     Indication: OSTEOPENIA
     Dosage: ONCE A MONTH PO
     Route: 048
     Dates: start: 20060901, end: 20061001

REACTIONS (5)
  - CHEST PAIN [None]
  - HYPERTENSION [None]
  - HYPOAESTHESIA [None]
  - JAW DISORDER [None]
  - VASOSPASM [None]
